FAERS Safety Report 18506808 (Version 2)
Quarter: 2021Q1

REPORT INFORMATION
  Report Type: Report from Study
  Country: DE (occurrence: DE)
  Receive Date: 20201116
  Receipt Date: 20210118
  Transmission Date: 20210419
  Serious: Yes (Hospitalization, Other)
  Sender: FDA-Public Use
  Company Number: DE-B.I. PHARMACEUTICALS,INC./RIDGEFIELD-2018-12-003943

PATIENT
  Age: 76 Year
  Sex: Male
  Weight: 93 kg

DRUGS (25)
  1. CONCOR [Concomitant]
     Active Substance: BISOPROLOL FUMARATE
     Indication: PRODUCT USED FOR UNKNOWN INDICATION
     Dosage: 1?0?0
  2. SPIRIVA [Concomitant]
     Active Substance: TIOTROPIUM BROMIDE MONOHYDRATE
     Indication: PRODUCT USED FOR UNKNOWN INDICATION
     Dosage: 2 PUFFS
     Route: 055
  3. ENALAPRIL [Concomitant]
     Active Substance: ENALAPRIL
     Dosage: 20 MG?0?10 MG
     Route: 048
  4. FALITHROM [Suspect]
     Active Substance: PHENPROCOUMON
     Dosage: DOSAGE DEPENDING ON VALUE
     Route: 065
  5. INEGY [Concomitant]
     Active Substance: EZETIMIBE\SIMVASTATIN
     Dosage: 2 STROKES
  6. TORASEMID [Concomitant]
     Active Substance: TORSEMIDE
     Indication: PRODUCT USED FOR UNKNOWN INDICATION
     Dosage: 2?1?0
  7. OXYGEN. [Concomitant]
     Active Substance: OXYGEN
     Indication: PRODUCT USED FOR UNKNOWN INDICATION
     Dosage: AT LEAST 16 HOURS WITH 2.5 L/MIN
     Route: 065
  8. ENALAPRIL [Concomitant]
     Active Substance: ENALAPRIL
     Indication: PRODUCT USED FOR UNKNOWN INDICATION
     Dosage: 1?0?0.5
     Route: 048
  9. NOVAMINSULFON [Concomitant]
     Active Substance: METAMIZOLE
     Indication: PRODUCT USED FOR UNKNOWN INDICATION
     Dosage: AS REQUIRED
  10. FALITHROM [Suspect]
     Active Substance: PHENPROCOUMON
     Indication: IDIOPATHIC PULMONARY FIBROSIS
     Dosage: DOSAGE DEPENS ON INR VALUE
     Route: 048
  11. CLEXANE [Concomitant]
     Active Substance: ENOXAPARIN SODIUM
     Route: 065
     Dates: start: 20181129, end: 20181206
  12. ESBRIET [Suspect]
     Active Substance: PIRFENIDONE
     Indication: IDIOPATHIC PULMONARY FIBROSIS
     Dosage: 534 MG
     Route: 048
     Dates: start: 20180908
  13. BISOPROLOL [Concomitant]
     Active Substance: BISOPROLOL
     Indication: PRODUCT USED FOR UNKNOWN INDICATION
     Route: 048
  14. HEPARIN [Concomitant]
     Active Substance: HEPARIN SODIUM
     Indication: PRODUCT USED FOR UNKNOWN INDICATION
     Dosage: AS REQUIRED?IF INR IS LESS THAN 2
     Route: 065
  15. ALLOPURINOL. [Concomitant]
     Active Substance: ALLOPURINOL
     Indication: PRODUCT USED FOR UNKNOWN INDICATION
     Dosage: 0?0?1
     Route: 048
  16. SPIRIVA [Concomitant]
     Active Substance: TIOTROPIUM BROMIDE MONOHYDRATE
     Dosage: 2 STROKES
     Route: 055
  17. ESBRIET [Suspect]
     Active Substance: PIRFENIDONE
     Dosage: 0.33DAY
     Route: 048
     Dates: start: 20181013
  18. OFEV [Suspect]
     Active Substance: NINTEDANIB
     Indication: IDIOPATHIC PULMONARY FIBROSIS
     Dosage: REACTION: DIARRHOEA, NAUSEA?2X100
     Route: 048
     Dates: start: 20180718, end: 20180906
  19. CLEXANE [Concomitant]
     Active Substance: ENOXAPARIN SODIUM
     Indication: PRODUCT USED FOR UNKNOWN INDICATION
     Route: 065
     Dates: start: 20190120, end: 20190130
  20. PALEXIA [Concomitant]
     Active Substance: TAPENTADOL HYDROCHLORIDE
     Indication: PRODUCT USED FOR UNKNOWN INDICATION
     Dosage: 1?0?1
  21. INEGY [Concomitant]
     Active Substance: EZETIMIBE\SIMVASTATIN
     Indication: PRODUCT USED FOR UNKNOWN INDICATION
     Dosage: 10/40 MG, 0?0?1
     Route: 065
  22. OXYGEN. [Concomitant]
     Active Substance: OXYGEN
     Dosage: 24 H AT 3 L/MIN
  23. HEPARIN [Concomitant]
     Active Substance: HEPARIN SODIUM
     Dosage: AS REQUIRED
  24. FALITHROM [Suspect]
     Active Substance: PHENPROCOUMON
     Dosage: DOSAGE DEPENS ON INR VALUE
     Route: 048
     Dates: start: 1997
  25. SIMVASTATIN. [Concomitant]
     Active Substance: SIMVASTATIN
     Indication: PRODUCT USED FOR UNKNOWN INDICATION
     Route: 048

REACTIONS (24)
  - Post procedural haemorrhage [Recovered/Resolved]
  - Suspected COVID-19 [Recovering/Resolving]
  - Food poisoning [Recovering/Resolving]
  - Basal cell carcinoma [Not Recovered/Not Resolved]
  - Fatigue [Not Recovered/Not Resolved]
  - Procedural pain [Not Recovered/Not Resolved]
  - Drug interaction [Unknown]
  - Nausea [Recovering/Resolving]
  - Abdominal distension [Not Recovered/Not Resolved]
  - Dyspnoea [Not Recovered/Not Resolved]
  - Dysgeusia [Not Recovered/Not Resolved]
  - Decreased appetite [Recovering/Resolving]
  - Diarrhoea [Recovered/Resolved]
  - Constipation [Recovered/Resolved]
  - Product dose omission issue [Unknown]
  - International normalised ratio fluctuation [Recovering/Resolving]
  - Dry mouth [Not Recovered/Not Resolved]
  - Mobility decreased [Not Recovered/Not Resolved]
  - Secretion discharge [Not Recovered/Not Resolved]
  - Dysphagia [Recovered/Resolved]
  - Haemorrhage [Recovered/Resolved]
  - Skin cancer [Not Recovered/Not Resolved]
  - Catheter site pain [Recovered/Resolved]
  - Pulmonary oedema [Recovered/Resolved]

NARRATIVE: CASE EVENT DATE: 20180801
